FAERS Safety Report 23486212 (Version 2)
Quarter: 2024Q1

REPORT INFORMATION
  Report Type: Spontaneous
  Country: HT (occurrence: HT)
  Receive Date: 20240206
  Receipt Date: 20240217
  Transmission Date: 20240410
  Serious: Yes (Death, Other)
  Sender: FDA-Public Use
  Company Number: HT-002147023-NVSC2024HT025358

PATIENT
  Age: 38 Year
  Sex: Female
  Weight: 70 kg

DRUGS (5)
  1. GLIVEC [Suspect]
     Active Substance: IMATINIB MESYLATE
     Indication: Chronic myeloid leukaemia
     Dosage: 400 MG (1X400 MG)
     Route: 065
     Dates: start: 20221025
  2. HYDROXYUREA [Concomitant]
     Active Substance: HYDROXYUREA
     Indication: Product used for unknown indication
     Dosage: 500 MG, BID
     Route: 065
     Dates: start: 202201
  3. HYDROXYUREA [Concomitant]
     Active Substance: HYDROXYUREA
     Dosage: 1 G, BID X 1 WEEK
     Route: 065
  4. ALLOPURINOL [Concomitant]
     Active Substance: ALLOPURINOL
     Indication: Product used for unknown indication
     Dosage: 200 MG, TID
     Route: 065
     Dates: start: 202201
  5. ALLOPURINOL [Concomitant]
     Active Substance: ALLOPURINOL
     Dosage: 300 MG, TID
     Route: 065

REACTIONS (8)
  - Leukostasis syndrome [Fatal]
  - Altered state of consciousness [Fatal]
  - Pneumonia [Fatal]
  - Mental impairment [Unknown]
  - Coordination abnormal [Unknown]
  - Muscular weakness [Unknown]
  - Leukocytosis [Unknown]
  - Oxygen saturation decreased [Unknown]

NARRATIVE: CASE EVENT DATE: 20240101
